FAERS Safety Report 10233812 (Version 2)
Quarter: 2014Q2

REPORT INFORMATION
  Report Type: Report from Study
  Country: NL (occurrence: NL)
  Receive Date: 20140612
  Receipt Date: 20140621
  Transmission Date: 20141212
  Serious: Yes (Hospitalization)
  Sender: FDA-Public Use
  Company Number: NL-ABBVIE-14K-114-1245567-00

PATIENT
  Age: 44 Year
  Sex: Female
  Weight: 68 kg

DRUGS (2)
  1. LUCRIN [Suspect]
     Indication: BREAST CANCER FEMALE
     Route: 058
     Dates: start: 20140321, end: 20140321
  2. TAMOXIFEN [Concomitant]
     Indication: BREAST CANCER FEMALE
     Route: 048
     Dates: start: 201209

REACTIONS (2)
  - Oophorectomy [Recovering/Resolving]
  - Abdominal pain [Recovered/Resolved]
